FAERS Safety Report 23377238 (Version 1)
Quarter: 2024Q1

REPORT INFORMATION
  Report Type: Spontaneous
  Country: US (occurrence: US)
  Receive Date: 20240108
  Receipt Date: 20240108
  Transmission Date: 20240410
  Serious: No
  Sender: FDA-Public Use
  Company Number: US-SANOFI-01893447

PATIENT
  Sex: Male
  Weight: 54.4 kg

DRUGS (2)
  1. TOUJEO MAX [Suspect]
     Active Substance: INSULIN GLARGINE
     Indication: Type 1 diabetes mellitus
     Dosage: 14 IU, QD
     Route: 065
     Dates: start: 2023
  2. HUMALOG [Concomitant]
     Active Substance: INSULIN LISPRO
     Dosage: 4 UNITS AFTER BREAKFAST AND 4 UNITS AFTER LUNCH AND DINNER, TID
     Route: 065

REACTIONS (1)
  - Abdominal adhesions [Unknown]
